FAERS Safety Report 6291164-6 (Version None)
Quarter: 2009Q3

REPORT INFORMATION
  Report Type: 
  Country: None (occurrence: None)
  Receive Date: 20090730
  Receipt Date: 20090723
  Transmission Date: 20100115
  Serious: Yes (Hospitalization)
  Sender: FDA-Public Use
  Company Number: B0585396A

PATIENT
  Sex: Male
  Weight: 53 kg

DRUGS (4)
  1. AUGMENTIN '125' [Suspect]
     Indication: DRUG USE FOR UNKNOWN INDICATION
     Dosage: 1G THREE TIMES PER DAY
     Route: 042
     Dates: start: 20090627, end: 20090629
  2. FUCIDINE CAP [Concomitant]
     Route: 048
     Dates: start: 20090623, end: 20090625
  3. DAKIN [Concomitant]
     Route: 065
     Dates: start: 20090623
  4. BIAFINE [Concomitant]
     Route: 065
     Dates: start: 20090623

REACTIONS (2)
  - INFUSION SITE REACTION [None]
  - LYMPHANGITIS [None]
